FAERS Safety Report 8143277-1 (Version None)
Quarter: 2012Q1

REPORT INFORMATION
  Report Type: 
  Country: None (occurrence: None)
  Receive Date: 20120217
  Receipt Date: 20120213
  Transmission Date: 20120608
  Serious: Yes (Other)
  Sender: FDA-Public Use
  Company Number: US-PFIZER INC-2012040904

PATIENT
  Sex: Female
  Weight: 54.422 kg

DRUGS (1)
  1. PREMARIN [Suspect]
     Indication: HOT FLUSH
     Dosage: 1.25 MG, 1X/DAY
     Route: 048

REACTIONS (1)
  - BODY HEIGHT DECREASED [None]
